FAERS Safety Report 11597030 (Version 19)
Quarter: 2022Q4

REPORT INFORMATION
  Report Type: Other
  Country: GB (occurrence: GB)
  Receive Date: 20151006
  Receipt Date: 20221208
  Transmission Date: 20230113
  Serious: Yes (Death, Hospitalization, Other)
  Sender: FDA-Public Use
  Company Number: GB-ROCHE-1641219

PATIENT
  Age: 73 Year
  Sex: Female

DRUGS (64)
  1. PERTUZUMAB [Suspect]
     Active Substance: PERTUZUMAB
     Indication: Breast cancer metastatic
     Route: 042
     Dates: start: 20150603, end: 20150807
  2. PERTUZUMAB [Suspect]
     Active Substance: PERTUZUMAB
     Route: 042
  3. ADO-TRASTUZUMAB EMTANSINE [Suspect]
     Active Substance: ADO-TRASTUZUMAB EMTANSINE
     Indication: Breast cancer metastatic
     Dosage: 184 MILLIGRAM, Q3W/ START DATE: 26-APR-2016
     Route: 042
     Dates: start: 20160426, end: 20160720
  4. ADO-TRASTUZUMAB EMTANSINE [Suspect]
     Active Substance: ADO-TRASTUZUMAB EMTANSINE
     Dosage: 184 MILLIGRAM, Q3W/ START DATE: 24-APR-2016
     Route: 042
     Dates: start: 20160424, end: 20160720
  5. ADO-TRASTUZUMAB EMTANSINE [Suspect]
     Active Substance: ADO-TRASTUZUMAB EMTANSINE
     Dosage: 148 MILLIGRAM, Q3W/ START DATE: 10-AUG-2016
     Route: 042
     Dates: start: 20160810, end: 20170419
  6. ADO-TRASTUZUMAB EMTANSINE [Suspect]
     Active Substance: ADO-TRASTUZUMAB EMTANSINE
     Dosage: 160 MILLIGRAM, Q3W/ START DATE: 10-MAY-2017
     Route: 042
     Dates: start: 20170510, end: 20180808
  7. TRASTUZUMAB [Suspect]
     Active Substance: TRASTUZUMAB
     Indication: Breast cancer metastatic
     Dosage: LOADING DOSE
     Route: 042
     Dates: start: 20150513, end: 20150513
  8. TRASTUZUMAB [Suspect]
     Active Substance: TRASTUZUMAB
     Dosage: 300 MILLIGRAM, 3XW/ START DATE: 08-JAN-2016
     Route: 042
     Dates: start: 20150603, end: 20150804
  9. TRASTUZUMAB [Suspect]
     Active Substance: TRASTUZUMAB
     Dosage: 400 MILLIGRAM, 3XW/ START DATE: 13-MAY-2015
     Route: 042
     Dates: start: 20150818, end: 20160720
  10. TRASTUZUMAB [Suspect]
     Active Substance: TRASTUZUMAB
     Dosage: 300 MILLIGRAM
     Route: 042
     Dates: start: 20160108, end: 20160405
  11. TRASTUZUMAB [Suspect]
     Active Substance: TRASTUZUMAB
     Dosage: 300 MILLIGRAM, 3XW// STAT DATE: 03-JUN-2015
     Route: 042
     Dates: end: 20150804
  12. TRASTUZUMAB [Suspect]
     Active Substance: TRASTUZUMAB
     Dosage: 275 MILLIGRAM, Q3W / START DATE:18-SEP-2015
     Route: 042
     Dates: start: 20150818, end: 20151211
  13. TRASTUZUMAB [Suspect]
     Active Substance: TRASTUZUMAB
     Dosage: 160 MILLIGRAM, Q3W/ START DATE: 10-MAY-2017
     Route: 042
     Dates: end: 20180808
  14. TRASTUZUMAB [Suspect]
     Active Substance: TRASTUZUMAB
     Dosage: 148 MILLIGRAM, 3XW/ START DATE: 10-AUG-2016
     Route: 042
     Dates: start: 20160810, end: 20170419
  15. TRASTUZUMAB [Suspect]
     Active Substance: TRASTUZUMAB
     Dosage: 300 MILLIGRAM, 3XW/ START DATE: 03-JUN-2015
     Route: 042
     Dates: end: 20150604
  16. TRASTUZUMAB [Suspect]
     Active Substance: TRASTUZUMAB
     Dosage: 300 MILLIGRAM, Q3W/ START DATE: 03-JUN-2015
     Route: 042
     Dates: start: 20150513, end: 20150828
  17. TRASTUZUMAB [Suspect]
     Active Substance: TRASTUZUMAB
     Dosage: 184 MILLIGRAM, Q3W/ START DATE: 26-APR-2016
     Route: 042
     Dates: end: 20160720
  18. TRASTUZUMAB [Suspect]
     Active Substance: TRASTUZUMAB
     Route: 042
     Dates: start: 20150603, end: 20150820
  19. TRASTUZUMAB [Suspect]
     Active Substance: TRASTUZUMAB
     Dosage: 160 MILLIGRAM, Q3W/ START DATE: 10-MAY-2017
     Route: 042
     Dates: start: 20170510, end: 20180808
  20. DOCETAXEL [Suspect]
     Active Substance: DOCETAXEL
     Indication: Breast cancer metastatic
     Route: 042
     Dates: start: 20150514, end: 20150715
  21. DOCETAXEL [Suspect]
     Active Substance: DOCETAXEL
     Dosage: MOST RECENT DOSE ON 18/SEP/2015
     Route: 042
     Dates: start: 20150828, end: 20150918
  22. DOCETAXEL [Suspect]
     Active Substance: DOCETAXEL
     Route: 065
  23. EXEMESTANE [Suspect]
     Active Substance: EXEMESTANE
     Indication: Breast cancer metastatic
     Route: 048
     Dates: start: 20151013, end: 201604
  24. NERATINIB [Suspect]
     Active Substance: NERATINIB
     Indication: HER2 positive breast cancer
     Dosage: 240 MILLIGRAM, QD
     Route: 048
     Dates: start: 20180825, end: 201811
  25. AMOXICILLIN\CLAVULANATE POTASSIUM [Concomitant]
     Active Substance: AMOXICILLIN\CLAVULANATE POTASSIUM
  26. BUDESONIDE [Concomitant]
     Active Substance: BUDESONIDE
     Indication: Product used for unknown indication
     Route: 048
     Dates: start: 20181025, end: 20181114
  27. CALAMINE [Concomitant]
     Active Substance: CALAMINE\FERRIC OXIDE RED\ZINC OXIDE
     Indication: Dry skin
     Dosage: UNK
     Route: 061
     Dates: start: 201508, end: 201601
  28. CETIRIZINE [Concomitant]
     Active Substance: CETIRIZINE HYDROCHLORIDE
     Route: 048
     Dates: start: 20150805, end: 20150807
  29. CETIRIZINE [Concomitant]
     Active Substance: CETIRIZINE HYDROCHLORIDE
     Route: 048
     Dates: start: 20150825, end: 20150827
  30. CETIRIZINE [Concomitant]
     Active Substance: CETIRIZINE HYDROCHLORIDE
     Route: 048
     Dates: end: 20190406
  31. CHLORPHENIRAMINE MALEATE [Concomitant]
     Active Substance: CHLORPHENIRAMINE MALEATE
     Indication: Pruritus
     Dosage: 10 MILLIGRAM, UNK
     Route: 042
     Dates: start: 20150807, end: 20150807
  32. CLAVULANIC ACID [Concomitant]
     Active Substance: CLAVULANIC ACID
     Indication: Infection
     Route: 048
     Dates: start: 20150804, end: 20150810
  33. AMOXICILLIN\CLAVULANATE POTASSIUM [Concomitant]
     Active Substance: AMOXICILLIN\CLAVULANATE POTASSIUM
     Indication: Product used for unknown indication
     Route: 048
     Dates: start: 20150804, end: 20150810
  34. AMOXICILLIN\CLAVULANATE POTASSIUM [Concomitant]
     Active Substance: AMOXICILLIN\CLAVULANATE POTASSIUM
     Route: 048
     Dates: start: 20180923, end: 20180930
  35. CYCLIZINE [Concomitant]
     Active Substance: CYCLIZINE
     Route: 058
     Dates: start: 201901, end: 20190406
  36. DEXAMETHASONE [Concomitant]
     Active Substance: DEXAMETHASONE
     Dosage: THREE DAYS PRIOR TO CHEMOTHERAPY
     Route: 048
     Dates: start: 20150803, end: 20150805
  37. DEXAMETHASONE [Concomitant]
     Active Substance: DEXAMETHASONE
     Dosage: LIQUID
     Route: 047
     Dates: start: 20150714, end: 20150923
  38. DEXAMETHASONE [Concomitant]
     Active Substance: DEXAMETHASONE
     Route: 048
     Dates: start: 20181002, end: 20181212
  39. DOMPERIDONE [Concomitant]
     Active Substance: DOMPERIDONE
     Indication: Prophylaxis
     Route: 048
     Dates: start: 20150803, end: 20150805
  40. GLYCOPYRROLATE [Concomitant]
     Active Substance: GLYCOPYRROLATE
     Indication: Product used for unknown indication
     Dosage: PRN (AS?NEEDED)
     Route: 058
     Dates: start: 201901, end: 20190406
  41. HYDROCORTISONE [Concomitant]
     Active Substance: HYDROCORTISONE
     Indication: Pruritus
     Dosage: 100 MILLIGRAM, 100 MG
     Route: 042
     Dates: start: 20150807, end: 20150807
  42. HYPROMELLOSES [Concomitant]
     Active Substance: HYPROMELLOSES
     Indication: Lacrimation increased
     Dosage: UNK, 0.33
     Route: 047
     Dates: end: 20160401
  43. HYPROMELLOSES [Concomitant]
     Active Substance: HYPROMELLOSES
     Dosage: 3 DOSAGE FORM, QD (3 OT, QD)
     Route: 047
     Dates: end: 20160401
  44. LACTULOSE [Concomitant]
     Active Substance: LACTULOSE
     Route: 048
     Dates: start: 201901, end: 20190406
  45. LANSOPRAZOLE [Concomitant]
     Active Substance: LANSOPRAZOLE
     Indication: Abdominal discomfort
     Route: 048
     Dates: start: 20181002, end: 201908
  46. LEVETIRACETAM [Concomitant]
     Active Substance: LEVETIRACETAM
     Route: 048
     Dates: start: 20180918, end: 20190406
  47. LOPERAMIDE [Concomitant]
     Active Substance: LOPERAMIDE
     Route: 048
     Dates: start: 20181025, end: 20190406
  48. LORAZEPAM [Concomitant]
     Active Substance: LORAZEPAM
     Indication: Insomnia
     Dosage: 0.5 MILLIGRAM, UNK
     Route: 048
     Dates: start: 20160830, end: 20190406
  49. LORAZEPAM [Concomitant]
     Active Substance: LORAZEPAM
     Indication: Panic attack
     Dosage: 2 MILLIGRAM, UNK
     Route: 042
     Dates: start: 20180917, end: 20180918
  50. MIDAZOLAM [Concomitant]
     Active Substance: MIDAZOLAM
     Indication: Product used for unknown indication
     Route: 058
     Dates: start: 201901, end: 20190406
  51. OMEPRAZOLE [Concomitant]
     Active Substance: OMEPRAZOLE
     Indication: Prophylaxis
     Route: 048
     Dates: start: 201901, end: 20190406
  52. OXYCODONE [Concomitant]
     Active Substance: OXYCODONE
     Indication: Product used for unknown indication
     Route: 058
     Dates: start: 201901, end: 20190406
  53. POTASSIUM CHLORIDE [Concomitant]
     Active Substance: POTASSIUM CHLORIDE
     Indication: Product used for unknown indication
     Dosage: 2 DOSAGE FORM, QD
     Route: 048
     Dates: start: 20181120, end: 20181125
  54. RANITIDINE [Concomitant]
     Active Substance: RANITIDINE
     Route: 048
     Dates: start: 20150805, end: 20150807
  55. RANITIDINE [Concomitant]
     Active Substance: RANITIDINE
     Route: 048
     Dates: start: 20150825, end: 20150827
  56. SANDO-K [Concomitant]
     Route: 048
     Dates: start: 20181120, end: 20181125
  57. SENNOSIDE B [Concomitant]
     Active Substance: SENNOSIDE B
     Indication: Constipation
     Dosage: 15 MILLIGRAM, UNK
     Route: 048
     Dates: start: 20160809, end: 20190406
  58. SENNOSIDE B [Concomitant]
     Active Substance: SENNOSIDE B
     Dosage: 30 MILLIGRAM, QD
     Route: 048
     Dates: start: 20160809, end: 20190406
  59. TICARCILLIN [Concomitant]
     Active Substance: TICARCILLIN
     Indication: Infection
     Dosage: 125 MILLIGRAM, QD
     Route: 048
     Dates: start: 20150804, end: 20150810
  60. TICARCILLIN [Concomitant]
     Active Substance: TICARCILLIN
     Dosage: 125 MG, QD
     Route: 048
     Dates: start: 20150804, end: 20150810
  61. SIMETHICONE (DIMETHICONE) [Concomitant]
     Active Substance: DIMETHICONE
     Dosage: UNK
  62. AMOXICILLIN [Concomitant]
     Active Substance: AMOXICILLIN
     Indication: Infection
     Route: 048
     Dates: start: 20150804, end: 20150810
  63. 3M CAVILON ANTIFUNGAL [Concomitant]
     Active Substance: MICONAZOLE NITRATE
  64. CALAMINE [Concomitant]
     Active Substance: CALAMINE\FERRIC OXIDE RED\ZINC OXIDE
     Indication: Product used for unknown indication
     Dosage: UNK
     Route: 061
     Dates: start: 201508, end: 201601

REACTIONS (24)
  - Lacrimation increased [Recovered/Resolved]
  - Dementia [Recovered/Resolved]
  - Catheter site haemorrhage [Recovered/Resolved]
  - Panic attack [Not Recovered/Not Resolved]
  - Hypokalaemia [Recovered/Resolved]
  - Ejection fraction decreased [Unknown]
  - Fatigue [Recovered/Resolved]
  - Insomnia [Not Recovered/Not Resolved]
  - Anaphylactic reaction [Recovered/Resolved]
  - Diarrhoea [Recovered/Resolved]
  - Memory impairment [Recovered/Resolved]
  - Nail dystrophy [Recovered/Resolved]
  - Appendicitis [Recovered/Resolved]
  - Axillary pain [Recovered/Resolved]
  - Constipation [Not Recovered/Not Resolved]
  - Pruritus [Recovered/Resolved]
  - Dry skin [Recovered/Resolved]
  - Chest discomfort [Recovered/Resolved]
  - Seizure [Recovered/Resolved]
  - Neuropathy peripheral [Recovered/Resolved]
  - Seizure [Recovered/Resolved]
  - Hypokalaemia [Recovered/Resolved]
  - Disease progression [Fatal]
  - Ejection fraction decreased [Unknown]

NARRATIVE: CASE EVENT DATE: 20150801
